FAERS Safety Report 18550645 (Version 3)
Quarter: 2021Q3

REPORT INFORMATION
  Report Type: Spontaneous
  Country: US (occurrence: US)
  Receive Date: 20201126
  Receipt Date: 20210929
  Transmission Date: 20211014
  Serious: No
  Sender: FDA-Public Use
  Company Number: US-PFIZER INC-2020463266

PATIENT
  Age: 68 Year
  Sex: Female

DRUGS (2)
  1. XELJANZ XR [Suspect]
     Active Substance: TOFACITINIB CITRATE
     Indication: INFLAMMATION
  2. XELJANZ XR [Suspect]
     Active Substance: TOFACITINIB CITRATE
     Indication: SKIN DISORDER
     Dosage: 11 MG

REACTIONS (5)
  - Drug ineffective for unapproved indication [Unknown]
  - Seborrhoea [Unknown]
  - Drug effective for unapproved indication [Unknown]
  - Acne [Unknown]
  - Off label use [Unknown]
